FAERS Safety Report 8191656-9 (Version None)
Quarter: 2012Q1

REPORT INFORMATION
  Report Type: 
  Country: None (occurrence: None)
  Receive Date: 20120307
  Receipt Date: 20110926
  Transmission Date: 20120608
  Serious: No
  Sender: FDA-Public Use
  Company Number: US-ASTRAZENECA-2011SE58044

PATIENT
  Sex: Female

DRUGS (2)
  1. ZOMIG [Suspect]
     Route: 048
  2. SEASONIQUE [Concomitant]

REACTIONS (4)
  - MALAISE [None]
  - MIGRAINE [None]
  - DRUG DOSE OMISSION [None]
  - ACTIVITIES OF DAILY LIVING IMPAIRED [None]
